FAERS Safety Report 5254406-1 (Version None)
Quarter: 2007Q1

REPORT INFORMATION
  Report Type: 
  Country: None (occurrence: None)
  Receive Date: 20070302
  Receipt Date: 20070226
  Transmission Date: 20070707
  Serious: Yes (Hospitalization)
  Sender: FDA-Public Use
  Company Number: GB-ROXANE LABORATORIES, INC-2007-BP-02682RO

PATIENT
  Age: 58 Year
  Sex: Female

DRUGS (3)
  1. LOPERAMIDE HCL [Suspect]
     Indication: DIARRHOEA
     Dosage: 2 MG Q6H X 12 DAYS
     Route: 048
  2. RIFAXIMIN [Suspect]
     Indication: LOCALISED INFECTION
     Dosage: 200 MG Q8H X 3 DAYS
  3. LEVOTHYROXINE SODIUM [Concomitant]
     Indication: HYPOTHYROIDISM
     Route: 048

REACTIONS (21)
  - ABDOMINAL DISTENSION [None]
  - ABDOMINAL PAIN [None]
  - AMOEBIC COLITIS [None]
  - ANOREXIA [None]
  - COLECTOMY [None]
  - DIARRHOEA [None]
  - DIARRHOEA HAEMORRHAGIC [None]
  - DRUG INEFFECTIVE [None]
  - GASTROINTESTINAL NECROSIS [None]
  - GENERAL PHYSICAL HEALTH DETERIORATION [None]
  - HYPOALBUMINAEMIA [None]
  - HYPONATRAEMIA [None]
  - ILEOSTOMY [None]
  - LARGE INTESTINE PERFORATION [None]
  - LYMPHOPENIA [None]
  - MEGACOLON [None]
  - NAUSEA [None]
  - NEUTROPENIA [None]
  - PERITONITIS [None]
  - PYREXIA [None]
  - SEPSIS [None]
